FAERS Safety Report 17598930 (Version 1)
Quarter: 2020Q1

REPORT INFORMATION
  Report Type: Spontaneous
  Country: US (occurrence: US)
  Receive Date: 20200329
  Receipt Date: 20200329
  Transmission Date: 20200409
  Serious: Yes (Other)
  Sender: FDA-Public Use
  Company Number: None

PATIENT
  Age: 49 Day
  Sex: Male
  Weight: 96.62 kg

DRUGS (1)
  1. BREO ELLIPTA [Suspect]
     Active Substance: FLUTICASONE FUROATE\VILANTEROL TRIFENATATE
     Indication: ASTHMA
     Dates: start: 20200320, end: 20200320

REACTIONS (5)
  - Tremor [None]
  - Nausea [None]
  - Nervousness [None]
  - Pyrexia [None]
  - Abdominal distension [None]

NARRATIVE: CASE EVENT DATE: 20200325
